FAERS Safety Report 6012868-6 (Version None)
Quarter: 2008Q4

REPORT INFORMATION
  Report Type: 
  Country: None (occurrence: None)
  Receive Date: 20081219
  Receipt Date: 20081212
  Transmission Date: 20090506
  Serious: Yes (Hospitalization)
  Sender: FDA-Public Use
  Company Number: JP-SP-2008-04021

PATIENT
  Age: 60 Year
  Sex: Female

DRUGS (1)
  1. IMMUCYST [Suspect]
     Indication: BLADDER CANCER
     Dosage: NOT REPORTED
     Route: 065

REACTIONS (4)
  - ARTHRALGIA [None]
  - JOINT EFFUSION [None]
  - OEDEMA PERIPHERAL [None]
  - REITER'S SYNDROME [None]
